FAERS Safety Report 6687694-5 (Version None)
Quarter: 2010Q2

REPORT INFORMATION
  Report Type: 
  Country: None (occurrence: None)
  Receive Date: 20100409
  Receipt Date: 20090914
  Transmission Date: 20101027
  Serious: Yes (Other)
  Sender: FDA-Public Use
  Company Number: AE 2009-117

PATIENT
  Age: 37 Year
  Sex: Male

DRUGS (11)
  1. FAZACLO ODT [Suspect]
     Indication: BIPOLAR DISORDER
     Dosage: 500 MG DAILY PO
     Route: 048
     Dates: start: 20060101
  2. LITHIUM CARBONATE [Concomitant]
  3. CLONIDINE [Concomitant]
  4. LEXAPRO [Concomitant]
  5. PINDOLOL [Concomitant]
  6. DESMOPRESSIN ACETATE [Concomitant]
  7. AMITIZA [Concomitant]
  8. TOPAMAX [Concomitant]
  9. PROTONIX [Concomitant]
  10. DEPAKOTE [Concomitant]
  11. GLYCOLOX [Concomitant]

REACTIONS (1)
  - MYOCLONUS [None]
